FAERS Safety Report 20455976 (Version 2)
Quarter: 2022Q1

REPORT INFORMATION
  Report Type: Spontaneous
  Country: US (occurrence: US)
  Receive Date: 20220210
  Receipt Date: 20220325
  Transmission Date: 20220423
  Serious: Yes (Hospitalization, Other)
  Sender: FDA-Public Use
  Company Number: US-JNJFOC-20220207815

PATIENT
  Age: 84 Year
  Sex: Male
  Weight: 77.180 kg

DRUGS (12)
  1. XARELTO [Suspect]
     Active Substance: RIVAROXABAN
     Indication: Atrial fibrillation
     Dosage: PRESCRIPTION NUMBER-3011465754
     Route: 048
     Dates: start: 20200529, end: 20211220
  2. XARELTO [Suspect]
     Active Substance: RIVAROXABAN
     Indication: Cerebrovascular accident prophylaxis
  3. FUROSEMIDE [Concomitant]
     Active Substance: FUROSEMIDE
     Indication: Fluid retention
     Route: 048
     Dates: start: 2020
  4. AMLODIPINE [Concomitant]
     Active Substance: AMLODIPINE BESYLATE
     Indication: Blood pressure measurement
     Route: 048
     Dates: start: 2020
  5. FOSAMAX [Concomitant]
     Active Substance: ALENDRONATE SODIUM
     Indication: Bone disorder
     Route: 065
     Dates: start: 2013
  6. IPRATROPIUM [Concomitant]
     Active Substance: IPRATROPIUM
     Indication: Productive cough
     Route: 045
  7. MORNIFLUMATE [Concomitant]
     Active Substance: MORNIFLUMATE
     Indication: Micturition disorder
     Route: 048
     Dates: start: 2013
  8. COLACE [Concomitant]
     Active Substance: DOCUSATE SODIUM
     Indication: Product used for unknown indication
  9. FISH OIL [Concomitant]
     Active Substance: FISH OIL
     Indication: Product used for unknown indication
  10. PROTEIN [Concomitant]
     Active Substance: PROTEIN
     Indication: Memory impairment
  11. PROTEIN [Concomitant]
     Active Substance: PROTEIN
     Indication: Cerebral disorder
  12. CHOLECALCIFEROL [Concomitant]
     Active Substance: CHOLECALCIFEROL
     Indication: Immunodeficiency

REACTIONS (3)
  - Bladder obstruction [Unknown]
  - Haemorrhage urinary tract [Unknown]
  - Product label issue [Unknown]

NARRATIVE: CASE EVENT DATE: 20211220
